FAERS Safety Report 10836146 (Version 2)
Quarter: 2015Q2

REPORT INFORMATION
  Report Type: Other
  Country: NL (occurrence: NL)
  Receive Date: 20150219
  Receipt Date: 20150406
  Transmission Date: 20150821
  Serious: Yes (Other)
  Sender: FDA-Public Use
  Company Number: NL-TAKEDA-2015TJP002623

PATIENT
  Age: 57 Year
  Sex: Female
  Weight: 57 kg

DRUGS (11)
  1. VALDOXAN [Concomitant]
     Active Substance: AGOMELATINE
     Indication: PRODUCT USED FOR UNKNOWN INDICATION
     Dosage: 50 MG, QD
     Route: 048
     Dates: start: 2010
  2. CYMBALTA [Concomitant]
     Active Substance: DULOXETINE HYDROCHLORIDE
     Indication: PRODUCT USED FOR UNKNOWN INDICATION
     Dosage: UNK
     Route: 065
  3. BRINTELLIX [Suspect]
     Active Substance: VORTIOXETINE HYDROBROMIDE
     Dosage: 15 MG, UNK
     Route: 048
  4. DIAZEPAM. [Concomitant]
     Active Substance: DIAZEPAM
     Indication: MUSCLE SPASMS
     Dosage: 40 MG, UNK
     Route: 048
     Dates: start: 2009
  5. BRINTELLIX [Suspect]
     Active Substance: VORTIOXETINE HYDROBROMIDE
     Indication: DEPRESSION
     Dosage: 10 MG, QD
     Route: 048
     Dates: start: 20141221
  6. QUETIAPINE [Concomitant]
     Active Substance: QUETIAPINE
     Indication: PRODUCT USED FOR UNKNOWN INDICATION
     Dosage: 25 MG, QD
     Route: 048
  7. EUTHYROX [Concomitant]
     Active Substance: LEVOTHYROXINE SODIUM
     Indication: PRODUCT USED FOR UNKNOWN INDICATION
     Dosage: 125 ?G, QD
     Route: 048
     Dates: start: 1988
  8. OMEPRAZOL                          /00661201/ [Concomitant]
     Active Substance: OMEPRAZOLE
     Indication: PRODUCT USED FOR UNKNOWN INDICATION
     Dosage: 40 MG, QD
     Route: 048
     Dates: start: 2013
  9. MAGNESIUMSULFAAT [Concomitant]
     Indication: PRODUCT USED FOR UNKNOWN INDICATION
     Dosage: 200 MG, QD
     Route: 048
     Dates: start: 2015
  10. PRIADEL                            /00033702/ [Concomitant]
     Active Substance: LITHIUM CARBONATE
     Indication: PRODUCT USED FOR UNKNOWN INDICATION
     Dosage: 600 MG, QD
     Route: 048
  11. DIVISUN [Concomitant]
     Indication: PRODUCT USED FOR UNKNOWN INDICATION
     Dosage: UNK UNK, QD
     Route: 048
     Dates: start: 2013

REACTIONS (7)
  - Crying [Recovering/Resolving]
  - Aggression [Unknown]
  - Hostility [Recovering/Resolving]
  - Paranoia [Recovering/Resolving]
  - Dry skin [Unknown]
  - Suicidal behaviour [Recovering/Resolving]
  - Hot flush [Unknown]

NARRATIVE: CASE EVENT DATE: 201501
